FAERS Safety Report 23948312 (Version 1)
Quarter: 2024Q2

REPORT INFORMATION
  Report Type: Spontaneous
  Country: JP (occurrence: JP)
  Receive Date: 20240607
  Receipt Date: 20240607
  Transmission Date: 20240716
  Serious: Yes (Other)
  Sender: FDA-Public Use
  Company Number: JP-GLAXOSMITHKLINE-JP2024JPN069435

PATIENT

DRUGS (4)
  1. ALBUTEROL [Suspect]
     Active Substance: ALBUTEROL
     Indication: Orthopnoea
     Dosage: UNK
     Route: 055
  2. ALBUTEROL [Suspect]
     Active Substance: ALBUTEROL
     Indication: Wheezing
  3. EPINEPHRINE [Concomitant]
     Active Substance: EPINEPHRINE
     Indication: Orthopnoea
     Dosage: UNK
     Route: 030
  4. EPINEPHRINE [Concomitant]
     Active Substance: EPINEPHRINE
     Indication: Wheezing

REACTIONS (7)
  - Depressed level of consciousness [Unknown]
  - Respiratory acidosis [Recovering/Resolving]
  - Condition aggravated [Recovering/Resolving]
  - Prolonged expiration [Recovering/Resolving]
  - Stress cardiomyopathy [Unknown]
  - Cardiac failure [Unknown]
  - Therapeutic product effect incomplete [Unknown]
